FAERS Safety Report 9664714 (Version 1)
Quarter: 2013Q4

REPORT INFORMATION
  Report Type: Report from Study
  Country: BR (occurrence: BR)
  Receive Date: 20131101
  Receipt Date: 20131101
  Transmission Date: 20140711
  Serious: Yes (Hospitalization)
  Sender: FDA-Public Use
  Company Number: BR-BAYER-2013-133220

PATIENT
  Age: 47 Year
  Sex: Female

DRUGS (2)
  1. BETAFERON [Suspect]
     Indication: RELAPSING-REMITTING MULTIPLE SCLEROSIS
     Dosage: 1 ML, QOD
     Route: 058
     Dates: start: 2007, end: 201309
  2. IMIPRAMINE [Concomitant]
     Indication: BIPOLAR DISORDER
     Dosage: 2 DF, QD
     Route: 048

REACTIONS (4)
  - Multiple sclerosis relapse [Recovering/Resolving]
  - Amnesia [Recovering/Resolving]
  - Blindness [Recovering/Resolving]
  - Gait disturbance [Recovering/Resolving]
